APPROVED DRUG PRODUCT: ATROPINE SULFATE
Active Ingredient: ATROPINE SULFATE
Strength: EQ 0.36MG BASE/INH
Dosage Form/Route: AEROSOL, METERED;INHALATION
Application: N020056 | Product #001
Applicant: UNITED STATES ARMY OFFICE SURGEON GENERAL
Approved: Sep 19, 1990 | RLD: No | RS: No | Type: DISCN